FAERS Safety Report 6380908-0 (Version None)
Quarter: 2009Q3

REPORT INFORMATION
  Report Type: 
  Country: None (occurrence: None)
  Receive Date: 20090929
  Receipt Date: 20090922
  Transmission Date: 20100115
  Serious: Yes (Other)
  Sender: FDA-Public Use
  Company Number: B0594986A

PATIENT
  Sex: Female

DRUGS (1)
  1. BECOTIDE 250 [Suspect]
     Indication: DRUG USE FOR UNKNOWN INDICATION
     Dosage: 250MCG UNKNOWN
     Route: 065

REACTIONS (1)
  - CUSHING'S SYNDROME [None]
